FAERS Safety Report 23909949 (Version 2)
Quarter: 2024Q3

REPORT INFORMATION
  Report Type: Spontaneous
  Country: MX (occurrence: MX)
  Receive Date: 20240528
  Receipt Date: 20240823
  Transmission Date: 20241016
  Serious: No
  Sender: SANDOZ
  Company Number: MX-SANDOZ-SDZ2023MX011418

PATIENT
  Sex: Female

DRUGS (2)
  1. OMNITROPE [Suspect]
     Active Substance: SOMATROPIN
     Indication: Turner^s syndrome
     Dosage: 1 MG, QD
     Route: 058
     Dates: start: 202208
  2. OMNITROPE [Suspect]
     Active Substance: SOMATROPIN
     Indication: Turner^s syndrome
     Dosage: 1 MG, QD
     Route: 058
     Dates: start: 202208

REACTIONS (2)
  - Injection site haematoma [Unknown]
  - Device issue [Unknown]

NARRATIVE: CASE EVENT DATE: 20230101
